FAERS Safety Report 5788380-6 (Version None)
Quarter: 2008Q2

REPORT INFORMATION
  Report Type: 
  Country: None (occurrence: None)
  Receive Date: 20080620
  Receipt Date: 20080610
  Transmission Date: 20081010
  Serious: Yes (Other)
  Sender: FDA-Public Use
  Company Number: JPI-P-003763

PATIENT
  Age: 61 Year
  Sex: Female

DRUGS (16)
  1. XYREM (OXYBATE SODIUM) (500 MILLGRAM/MILLILITERS, SOLUTION) (SODIUM OX [Suspect]
     Indication: INSOMNIA
     Dosage: ORAL, 32 GM (4 GM, 1 IN 3 HR), ORAL, 36 GM (6 GM, 1 IN 4 HR), ORAL, 30 GM (5 GM, 1 IN 4 HR), ORAL
     Route: 048
  2. ALPRAZOLAM [Concomitant]
  3. ESCITALOPRAM OXALATE [Concomitant]
  4. GABAPENTIN [Concomitant]
  5. LIOTHYROXINE (LIOTHYROXINE) [Concomitant]
  6. CONJUGATED ESTROGEN [Concomitant]
  7. HYDROCHLOROTHIAZIDE [Concomitant]
  8. HYDROCORTISONE [Concomitant]
  9. LISINOPRIL [Concomitant]
  10. OXYCODONE HCL [Concomitant]
  11. LORAZEPAM [Concomitant]
  12. METOCLOPRAMIDE [Concomitant]
  13. PAROXETINE HCL [Concomitant]
  14. QUETIAPINE FUMARATE [Concomitant]
  15. WARFARIN SODIUM [Concomitant]
  16. MEDROXYPROGESTERONE [Concomitant]

REACTIONS (7)
  - ANKLE FRACTURE [None]
  - CEREBELLAR SYNDROME [None]
  - DRUG DEPENDENCE [None]
  - DRUG WITHDRAWAL SYNDROME [None]
  - GRAND MAL CONVULSION [None]
  - SPEECH DISORDER [None]
  - TREMOR [None]
